FAERS Safety Report 13041008 (Version 1)
Quarter: 2016Q4

REPORT INFORMATION
  Report Type: Spontaneous
  Country: US (occurrence: US)
  Receive Date: 20161219
  Receipt Date: 20161219
  Transmission Date: 20170207
  Serious: Yes (Other)
  Sender: FDA-Public Use
  Company Number: US-ROCHE-1071280

PATIENT
  Age: 78 Year
  Sex: Female

DRUGS (7)
  1. NILOTINIB [Concomitant]
     Active Substance: NILOTINIB
     Indication: MALIGNANT MELANOMA
     Route: 048
     Dates: start: 201111
  2. COREG [Concomitant]
     Active Substance: CARVEDILOL
     Route: 048
  3. ZELBORAF [Suspect]
     Active Substance: VEMURAFENIB
     Indication: MALIGNANT MELANOMA
     Route: 048
     Dates: start: 201202
  4. LORATADINE. [Concomitant]
     Active Substance: LORATADINE
     Indication: HYPERSENSITIVITY
     Dosage: RECEIVED FROM LONG TIME
     Route: 048
  5. ZOLOFT [Concomitant]
     Active Substance: SERTRALINE HYDROCHLORIDE
     Indication: DEPRESSION
     Dosage: RECEIVED FROM LONG TIME
     Route: 048
  6. NILOTINIB [Concomitant]
     Active Substance: NILOTINIB
     Indication: CHRONIC LYMPHOCYTIC LEUKAEMIA
  7. SIMVASTATIN. [Concomitant]
     Active Substance: SIMVASTATIN
     Indication: HYPERLIPIDAEMIA
     Dosage: RECEIVED FROM LONG TIME
     Route: 048

REACTIONS (3)
  - Acne [Not Recovered/Not Resolved]
  - Alopecia [Not Recovered/Not Resolved]
  - Squamous cell carcinoma of skin [Recovered/Resolved]

NARRATIVE: CASE EVENT DATE: 20120215
